FAERS Safety Report 25480275 (Version 2)
Quarter: 2025Q3

REPORT INFORMATION
  Report Type: Spontaneous
  Country: SA (occurrence: SA)
  Receive Date: 20250625
  Receipt Date: 20250716
  Transmission Date: 20251021
  Serious: Yes (Death)
  Sender: BIOMARIN
  Company Number: SA-BIOMARINAP-SA-2025-166798

PATIENT
  Age: 18 Year
  Sex: Male

DRUGS (1)
  1. VIMIZIM [Suspect]
     Active Substance: ELOSULFASE ALFA
     Indication: Mucopolysaccharidosis IV

REACTIONS (1)
  - Death [Fatal]

NARRATIVE: CASE EVENT DATE: 20250623
